FAERS Safety Report 5338607-X (Version None)
Quarter: 2007Q2

REPORT INFORMATION
  Report Type: 
  Country: None (occurrence: None)
  Receive Date: 20070322
  Receipt Date: 20060901
  Transmission Date: 20071010
  Serious: Yes (Other)
  Sender: FDA-Public Use
  Company Number: 200613107BCC

PATIENT
  Age: 79 Year
  Sex: Female
  Weight: 46.2669 kg

DRUGS (1)
  1. ALEVE [Suspect]
     Indication: ARTHRALGIA
     Dosage: 220-440 MG, ORAL
     Route: 048

REACTIONS (3)
  - ANAPHYLACTIC SHOCK [None]
  - OBSTRUCTIVE AIRWAYS DISORDER [None]
  - PRURITUS [None]
